FAERS Safety Report 24697086 (Version 1)
Quarter: 2024Q4

REPORT INFORMATION
  Report Type: Spontaneous
  Country: US (occurrence: US)
  Receive Date: 20241204
  Receipt Date: 20241204
  Transmission Date: 20250115
  Serious: No
  Sender: Harrow Health
  Company Number: US-IMP-2024000925

PATIENT
  Age: 78 Year
  Sex: Male

DRUGS (1)
  1. ILEVRO [Suspect]
     Active Substance: NEPAFENAC
     Indication: Ocular cyst
     Dosage: ONCE DAILY LEFT EYE
     Route: 047

REACTIONS (3)
  - Off label use [Unknown]
  - Product use issue [Unknown]
  - Product use issue [Unknown]
